FAERS Safety Report 15184060 (Version 6)
Quarter: 2019Q4

REPORT INFORMATION
  Report Type: Report from Study
  Country: DE (occurrence: DE)
  Receive Date: 20180723
  Receipt Date: 20191010
  Transmission Date: 20200122
  Serious: Yes (Other)
  Sender: FDA-Public Use
  Company Number: DE-BAUSCH-BL-2018-019767

PATIENT
  Age: 40 Year
  Sex: Female
  Weight: 77 kg

DRUGS (10)
  1. SITAGLIPTIN [Suspect]
     Active Substance: SITAGLIPTIN
     Indication: TYPE 2 DIABETES MELLITUS
     Route: 065
  2. FOLIC ACID. [Suspect]
     Active Substance: FOLIC ACID
     Indication: PROPHYLAXIS OF NEURAL TUBE DEFECT
     Route: 048
  3. XELEVIA [Suspect]
     Active Substance: SITAGLIPTIN PHOSPHATE
     Indication: TYPE 2 DIABETES MELLITUS
     Dosage: PREGNANCY WEEK 0 TO 6 (PLUS 4), 1 MONTH 16 DAYS 12 HOURS
     Route: 048
     Dates: start: 20130310, end: 20130425
  4. INSULIN HUMAN [Suspect]
     Active Substance: INSULIN HUMAN
     Indication: TYPE 2 DIABETES MELLITUS
     Dosage: PREGNANCY WEEK 0 TO 35 (PLUS 3)
     Route: 065
  5. L-THYROXIN [Suspect]
     Active Substance: LEVOTHYROXINE SODIUM
     Indication: AUTOIMMUNE THYROIDITIS
     Dosage: PREGNANCY WEEK 0 TO 35 (PLUS 3), 8 MONTHS 5 DAYS
     Route: 048
     Dates: start: 20130310, end: 20131113
  6. METFORMIN HYDROCHLORIDE. [Suspect]
     Active Substance: METFORMIN HYDROCHLORIDE
     Indication: TYPE 2 DIABETES MELLITUS
     Dosage: PREGNANCY WEEK 0 TO 6(PLUS 4), 1 MONTH 16 DAYS 12 HRS
     Route: 048
     Dates: start: 20130310, end: 20130425
  7. DOPEGYT [Suspect]
     Active Substance: METHYLDOPA
     Indication: HYPERTENSION
     Dosage: PREGNANCY WEEK 7(PLUS 4) TO 35 (PLUS 3), 6 MONTHS 13 DAYS
     Route: 048
     Dates: start: 20130502, end: 20131113
  8. RAMIPRIL. [Suspect]
     Active Substance: RAMIPRIL
     Indication: HYPERTENSION
     Dosage: PREGNANCY WEEK 0-6 (PLUS 4), 1 MONTH 16 DAYS
     Route: 048
     Dates: start: 20130310, end: 20130425
  9. IODINE. [Suspect]
     Active Substance: IODINE
     Indication: PROPHYLAXIS
     Route: 048
  10. METOPROLOL. [Suspect]
     Active Substance: METOPROLOL
     Indication: HYPERTENSION
     Dosage: PREGNANCY WEEK 7(PLUS 4) TO 35 (PLUS 3), SALT NOT SPECIFIED, 6 MONTHS 13 DAYS
     Route: 048
     Dates: start: 20130502, end: 20131113

REACTIONS (5)
  - Caesarean section [Unknown]
  - Maternal exposure during pregnancy [Unknown]
  - Premature delivery [Unknown]
  - Polyhydramnios [Unknown]
  - Placental insufficiency [Unknown]

NARRATIVE: CASE EVENT DATE: 20130310
